FAERS Safety Report 14589024 (Version 4)
Quarter: 2025Q1

REPORT INFORMATION
  Report Type: Spontaneous
  Country: FR (occurrence: FR)
  Receive Date: 20180301
  Receipt Date: 20250106
  Transmission Date: 20250409
  Serious: Yes (Hospitalization, Other)
  Sender: MERCK
  Company Number: FR-009507513-1703FRA005299

PATIENT
  Age: 83 Year
  Sex: Female
  Weight: 60 kg

DRUGS (11)
  1. ROCURONIUM BROMIDE [Suspect]
     Active Substance: ROCURONIUM BROMIDE
     Indication: General anaesthesia
     Route: 042
     Dates: start: 20170206, end: 20170206
  2. ROCURONIUM BROMIDE [Suspect]
     Active Substance: ROCURONIUM BROMIDE
     Indication: Endotracheal intubation
  3. ROCURONIUM BROMIDE [Suspect]
     Active Substance: ROCURONIUM BROMIDE
     Indication: Anaesthesia
  4. ULTIVA [Suspect]
     Active Substance: REMIFENTANIL HYDROCHLORIDE
     Indication: General anaesthesia
     Route: 042
     Dates: start: 20170206
  5. ULTIVA [Suspect]
     Active Substance: REMIFENTANIL HYDROCHLORIDE
     Indication: Analgesic therapy
     Route: 042
  6. CEFAZOLIN [Suspect]
     Active Substance: CEFAZOLIN
     Indication: Prophylaxis
     Route: 042
     Dates: start: 20170206
  7. CEFAZOLIN [Suspect]
     Active Substance: CEFAZOLIN
     Indication: Prophylaxis
  8. PROPOFOL [Suspect]
     Active Substance: PROPOFOL
     Indication: General anaesthesia
     Route: 042
     Dates: start: 20170206
  9. DESFLURANE [Concomitant]
     Active Substance: DESFLURANE
     Indication: Product used for unknown indication
     Dates: start: 20170206
  10. KETAMINE [Concomitant]
     Active Substance: KETAMINE
     Indication: Analgesic therapy
     Route: 042
     Dates: start: 20170206
  11. DEXAMETHASONE [Concomitant]
     Active Substance: DEXAMETHASONE
     Indication: Prophylaxis of nausea and vomiting
     Route: 042
     Dates: start: 20170206

REACTIONS (5)
  - Sinus tachycardia [Recovering/Resolving]
  - Tongue oedema [Recovered/Resolved]
  - Anaphylactic shock [Recovering/Resolving]
  - Circumoral oedema [Recovered/Resolved]
  - Blood pressure decreased [Recovering/Resolving]

NARRATIVE: CASE EVENT DATE: 20170206
